FAERS Safety Report 5701108-0 (Version None)
Quarter: 2008Q2

REPORT INFORMATION
  Report Type: 
  Country: None (occurrence: None)
  Receive Date: 20080410
  Receipt Date: 20080331
  Transmission Date: 20081010
  Serious: Yes (Hospitalization)
  Sender: FDA-Public Use
  Company Number: US-PFIZER INC-2008028313

PATIENT
  Sex: Female
  Weight: 45.454 kg

DRUGS (8)
  1. CELEBREX [Suspect]
     Indication: SPONDYLITIS
     Dosage: DAILY DOSE:400MG
     Dates: start: 20040101, end: 20040101
  2. CELEBREX [Suspect]
     Indication: SPINAL OSTEOARTHRITIS
  3. INDERAL [Concomitant]
  4. LASIX [Concomitant]
  5. KLONOPIN [Concomitant]
  6. POTASSIUM CHLORIDE [Concomitant]
  7. BABYPRIN [Concomitant]
  8. ALL OTHER THERAPEUTIC PRODUCTS [Concomitant]

REACTIONS (2)
  - ARTHRITIS [None]
  - DRUG INEFFECTIVE [None]
